FAERS Safety Report 25591217 (Version 1)
Quarter: 2025Q3

REPORT INFORMATION
  Report Type: Spontaneous
  Country: US (occurrence: None)
  Receive Date: 20250722
  Receipt Date: 20250722
  Transmission Date: 20251020
  Serious: Yes (Hospitalization)
  Sender: FDA-CTU
  Company Number: None

PATIENT
  Sex: Female

DRUGS (11)
  1. LENALIDOMIDE [Suspect]
     Active Substance: LENALIDOMIDE
     Indication: B-cell lymphoma
     Dosage: FREQUENCY : DAILY;?
     Route: 048
     Dates: start: 20250423
  2. ALLOPURINOL TAB 300MG [Concomitant]
  3. ASPIRIN CHW 81MG [Concomitant]
  4. CARVEDILOL TAB 25MG [Concomitant]
  5. CHOLESTYRAM POW 4GM [Concomitant]
  6. IRBESARTAN [Concomitant]
     Active Substance: IRBESARTAN
  7. LENALIDOMIDE [Concomitant]
     Active Substance: LENALIDOMIDE
  8. LEVOTHYROXIN TAB 25MCG [Concomitant]
  9. METOPROL TAR TAB 100MG [Concomitant]
  10. NIFEDIPINE TAB 30MG ER [Concomitant]
  11. PREDNISONE [Concomitant]
     Active Substance: PREDNISONE

REACTIONS (2)
  - Intestinal obstruction [None]
  - Therapy interrupted [None]
